FAERS Safety Report 21962387 (Version 2)
Quarter: 2024Q1

REPORT INFORMATION
  Report Type: Report from Study
  Country: US (occurrence: US)
  Receive Date: 20230207
  Receipt Date: 20240207
  Transmission Date: 20240410
  Serious: No
  Sender: FDA-Public Use
  Company Number: US-ORG100014127-2022000644

PATIENT
  Age: 43 Year
  Sex: Female

DRUGS (10)
  1. LYSODREN [Suspect]
     Active Substance: MITOTANE
     Indication: Adrenal gland cancer
     Dosage: 01 TABLET 04 TIMES DAILY
     Route: 048
     Dates: start: 20210326
  2. ALBUTEROL SULFATE [Concomitant]
     Active Substance: ALBUTEROL SULFATE
     Indication: Product used for unknown indication
  3. AZITHROMYCIN [Concomitant]
     Active Substance: AZITHROMYCIN
     Indication: Product used for unknown indication
  4. BENZONATATE CAP 100MG [Concomitant]
     Indication: Product used for unknown indication
  5. HYDROXYZ PAM CAP 50MG [Concomitant]
     Indication: Product used for unknown indication
  6. LIDO/PRILOCN CRE 2.5-2.5% [Concomitant]
     Indication: Product used for unknown indication
  7. METHOCARBAM TAB 500MG [Concomitant]
     Indication: Product used for unknown indication
  8. OLANZAPINE TAB 5MG [Concomitant]
     Indication: Product used for unknown indication
  9. ONDANSETRON TAB 8MG ODT [Concomitant]
     Indication: Product used for unknown indication
  10. OXYCODONE [Concomitant]
     Active Substance: OXYCODONE\OXYCODONE HYDROCHLORIDE
     Indication: Product used for unknown indication

REACTIONS (3)
  - Bone pain [Not Recovered/Not Resolved]
  - Product after taste [Not Recovered/Not Resolved]
  - Pain [Not Recovered/Not Resolved]

NARRATIVE: CASE EVENT DATE: 20220101
